FAERS Safety Report 9110111 (Version 1)
Quarter: 2013Q1

REPORT INFORMATION
  Report Type: Spontaneous
  Country: US (occurrence: US)
  Receive Date: 20130222
  Receipt Date: 20130222
  Transmission Date: 20140127
  Serious: Yes (Hospitalization)
  Sender: FDA-Public Use
  Company Number: US-BAYER-2013-020964

PATIENT
  Age: 40 Year
  Sex: Female
  Weight: 92.97 kg

DRUGS (11)
  1. OCELLA [Suspect]
  2. YASMIN [Suspect]
  3. YAZ [Suspect]
     Indication: MENORRHAGIA
  4. YAZ [Suspect]
     Indication: MOOD SWINGS
  5. PAXIL CR [Concomitant]
  6. IBUPROFEN [Concomitant]
  7. VICODIN [Concomitant]
     Indication: CHEST PAIN
  8. MOTRIN [Concomitant]
     Indication: CHEST PAIN
  9. OXYCONTIN [Concomitant]
  10. ZOFRAN [Concomitant]
  11. FENTANYL [Concomitant]

REACTIONS (1)
  - Pulmonary embolism [None]
